FAERS Safety Report 7248284-9 (Version None)
Quarter: 2011Q1

REPORT INFORMATION
  Report Type: 
  Country: None (occurrence: None)
  Receive Date: 20110127
  Receipt Date: 20110114
  Transmission Date: 20110831
  Serious: Yes (Other)
  Sender: FDA-Public Use
  Company Number: US-BAYER-2011-005414

PATIENT
  Sex: Female
  Weight: 61 kg

DRUGS (4)
  1. MULTI-VITAMIN [Concomitant]
  2. CALCIUM [Concomitant]
  3. ALEVE (CAPLET) [Suspect]
     Dosage: 220 MG, ONCE
     Dates: start: 20110110
  4. ZOCOR [Concomitant]

REACTIONS (5)
  - LOSS OF CONSCIOUSNESS [None]
  - FALL [None]
  - UNEVALUABLE EVENT [None]
  - RASH PRURITIC [None]
  - SENSORIMOTOR DISORDER [None]
